FAERS Safety Report 7572868-1 (Version None)
Quarter: 2011Q2

REPORT INFORMATION
  Report Type: 
  Country: None (occurrence: None)
  Receive Date: 20110627
  Receipt Date: 20110620
  Transmission Date: 20111010
  Serious: Yes (Death, Hospitalization, Other)
  Sender: FDA-Public Use
  Company Number: BR-ELI_LILLY_AND_COMPANY-BR201106006011

PATIENT
  Sex: Male
  Weight: 75 kg

DRUGS (5)
  1. PANTOPRAZOLE [Concomitant]
     Dosage: UNK
     Route: 065
  2. LASIX [Concomitant]
     Dosage: UNK
     Route: 065
  3. COZAAR [Concomitant]
     Dosage: UNK
     Route: 065
  4. FUROSEMIDA                         /00032601/ [Concomitant]
     Dosage: UNK
     Route: 065
  5. CYMBALTA [Suspect]
     Indication: DEPRESSION
     Dosage: 60 MG, BID
     Route: 065

REACTIONS (8)
  - AORTIC STENOSIS [None]
  - URINARY TRACT INFECTION [None]
  - CARDIAC DISORDER [None]
  - BRONCHOPNEUMONIA [None]
  - GLAUCOMA [None]
  - SEPTIC SHOCK [None]
  - RENAL FAILURE [None]
  - PNEUMONIA [None]
